FAERS Safety Report 25916676 (Version 1)
Quarter: 2025Q4

REPORT INFORMATION
  Report Type: Spontaneous
  Country: US (occurrence: US)
  Receive Date: 20251014
  Receipt Date: 20251014
  Transmission Date: 20260118
  Serious: No
  Sender: ROCHE
  Company Number: US-ROCHE-10000408326

PATIENT
  Sex: Female

DRUGS (1)
  1. ACTEMRA ACTPEN [Suspect]
     Active Substance: TOCILIZUMAB
     Indication: Eye disorder
     Route: 058
     Dates: start: 202509

REACTIONS (3)
  - Off label use [Unknown]
  - Impatience [Unknown]
  - Migraine [Unknown]
